FAERS Safety Report 24261637 (Version 2)
Quarter: 2024Q3

REPORT INFORMATION
  Report Type: Spontaneous
  Country: US (occurrence: US)
  Receive Date: 20240829
  Receipt Date: 20240925
  Transmission Date: 20241017
  Serious: No
  Sender: SANOFI AVENTIS
  Company Number: US-SANOFI-02187568

PATIENT
  Age: 31 Year
  Sex: Female

DRUGS (3)
  1. LANTUS SOLOSTAR [Suspect]
     Active Substance: INSULIN GLARGINE
     Indication: Type 2 diabetes mellitus
     Dosage: 10 IU, QD
     Route: 058
     Dates: start: 20240812
  2. LANTUS SOLOSTAR [Suspect]
     Active Substance: INSULIN GLARGINE
     Dosage: 30 IU, QD
     Route: 058
     Dates: start: 202408, end: 202408
  3. LANTUS SOLOSTAR [Suspect]
     Active Substance: INSULIN GLARGINE
     Dosage: 18 IU; QD
     Route: 058
     Dates: start: 202408, end: 20240818

REACTIONS (3)
  - Injection site hypersensitivity [Recovering/Resolving]
  - Injection site urticaria [Recovering/Resolving]
  - Injection site pruritus [Recovering/Resolving]

NARRATIVE: CASE EVENT DATE: 20240812
